FAERS Safety Report 9061981 (Version 1)
Quarter: 2013Q1

REPORT INFORMATION
  Report Type: Spontaneous
  Country: CA (occurrence: None)
  Receive Date: 20130122
  Receipt Date: 20130122
  Transmission Date: 20140127
  Serious: Yes (Hospitalization)
  Sender: FDA-Public Use
  Company Number: 2013AP000070

PATIENT
  Sex: 0

DRUGS (1)
  1. APO-FLUCONAZOLE [Suspect]

REACTIONS (1)
  - Palpitations [None]
